FAERS Safety Report 5892038-2 (Version None)
Quarter: 2008Q3

REPORT INFORMATION
  Report Type: 
  Country: None (occurrence: None)
  Receive Date: 20080918
  Receipt Date: 20080918
  Transmission Date: 20090109
  Serious: Yes (Hospitalization)
  Sender: FDA-Public Use
  Company Number: None

PATIENT
  Sex: Male
  Weight: 81.6475 kg

DRUGS (2)
  1. SOTRET [Suspect]
     Indication: ACNE
     Dosage: 40 MG BID PO
     Route: 048
     Dates: start: 20080302, end: 20080917
  2. DAPSONE [Suspect]
     Dosage: 25 MG  BID PO
     Route: 048
     Dates: start: 20080502, end: 20080820

REACTIONS (9)
  - ACNE [None]
  - BACK PAIN [None]
  - CHEST PAIN [None]
  - CONDITION AGGRAVATED [None]
  - FALL [None]
  - HAEMOGLOBINAEMIA [None]
  - IMPAIRED HEALING [None]
  - OXYGEN SATURATION DECREASED [None]
  - WOUND DEHISCENCE [None]
